FAERS Safety Report 8909222 (Version 1)
Quarter: 2012Q4

REPORT INFORMATION
  Report Type: Spontaneous
  Country: US (occurrence: None)
  Receive Date: 20121113
  Receipt Date: 20121113
  Transmission Date: 20130627
  Serious: Yes (Hospitalization)
  Sender: FDA-Public Use
  Company Number: None

PATIENT
  Age: 74 Year
  Sex: Male
  Weight: 74.7 kg

DRUGS (1)
  1. SUNITINIB [Suspect]
     Route: 048
     Dates: start: 20120812, end: 20120926

REACTIONS (9)
  - Sedation [None]
  - Asthenia [None]
  - Fatigue [None]
  - Jaundice [None]
  - Nausea [None]
  - Dysgeusia [None]
  - Hyperbilirubinaemia [None]
  - Hypothyroidism [None]
  - Pancytopenia [None]
